FAERS Safety Report 4971342-6 (Version None)
Quarter: 2006Q2

REPORT INFORMATION
  Report Type: 
  Country: None (occurrence: None)
  Receive Date: 20060413
  Receipt Date: 20060404
  Transmission Date: 20061013
  Serious: Yes (Death, Life-Threatening, Hospitalization, Other)
  Sender: FDA-Public Use
  Company Number: GB-JNJFOC-20060204094

PATIENT
  Sex: Female
  Weight: 67 kg

DRUGS (7)
  1. REMICADE [Suspect]
     Indication: RHEUMATOID ARTHRITIS
     Route: 042
  2. METHOTREXATE [Concomitant]
  3. FOLIC ACID [Concomitant]
  4. LANSOPRAZOLE [Concomitant]
  5. ADCAL D3 [Concomitant]
  6. ADCAL D3 [Concomitant]
  7. CEFADROXIL [Concomitant]

REACTIONS (1)
  - PNEUMONIA MYCOPLASMAL [None]
